FAERS Safety Report 6740222-8 (Version None)
Quarter: 2010Q2

REPORT INFORMATION
  Report Type: 
  Country: None (occurrence: None)
  Receive Date: 20100525
  Receipt Date: 20100510
  Transmission Date: 20101027
  Serious: Yes (Death)
  Sender: FDA-Public Use
  Company Number: B0646016A

PATIENT
  Sex: Female
  Weight: 80 kg

DRUGS (8)
  1. ZANAMIVIR [Suspect]
     Indication: H1N1 INFLUENZA
     Dosage: 400MG TWICE PER DAY
     Route: 042
     Dates: start: 20091124, end: 20091203
  2. TENORMIN [Concomitant]
  3. TAHOR [Concomitant]
  4. LEVOTHYROXINE SODIUM [Concomitant]
  5. VENTILATION [Concomitant]
     Indication: ACUTE RESPIRATORY DISTRESS SYNDROME
  6. ZOVIRAX [Concomitant]
     Indication: HERPES VIRUS INFECTION
     Route: 042
     Dates: start: 20091128
  7. CORTICOSTEROID [Concomitant]
     Indication: PULMONARY FIBROSIS
     Dates: start: 20091210
  8. FLUID REPLACEMENT THERAPY [Concomitant]

REACTIONS (8)
  - ACUTE RESPIRATORY DISTRESS SYNDROME [None]
  - CYTOLYTIC HEPATITIS [None]
  - EPISTAXIS [None]
  - HAEMODYNAMIC INSTABILITY [None]
  - HAEMOLYSIS [None]
  - MELAENA [None]
  - MULTI-ORGAN FAILURE [None]
  - SHOCK HAEMORRHAGIC [None]
